FAERS Safety Report 6585865-X (Version None)
Quarter: 2010Q1

REPORT INFORMATION
  Report Type: 
  Country: None (occurrence: None)
  Receive Date: 20100217
  Receipt Date: 20100212
  Transmission Date: 20100710
  Serious: Yes (Hospitalization, Other)
  Sender: FDA-Public Use
  Company Number: IT-ELI_LILLY_AND_COMPANY-IT200912004197

PATIENT
  Sex: Male

DRUGS (6)
  1. GEMZAR [Suspect]
     Indication: LUNG NEOPLASM MALIGNANT
     Dosage: 1300 MG, OTHER (PER CYCLE)
     Route: 042
     Dates: start: 20091104, end: 20091125
  2. CARBOPLATIN [Concomitant]
     Indication: LUNG NEOPLASM MALIGNANT
     Dosage: 260 MG, OTHER (PER CYCLE)
     Route: 042
     Dates: start: 20091104, end: 20091125
  3. CARBOPLATIN [Concomitant]
     Dosage: UNK, UNKNOWN
     Route: 065
     Dates: start: 20091201, end: 20091201
  4. KYTRIL [Concomitant]
  5. DECADRON /CAN/ [Concomitant]
  6. NORVASC [Concomitant]
     Indication: HYPERTENSION

REACTIONS (3)
  - MALIGNANT NEOPLASM PROGRESSION [None]
  - PULMONARY EMBOLISM [None]
  - SUPRAVENTRICULAR TACHYCARDIA [None]
